FAERS Safety Report 23615663 (Version 2)
Quarter: 2024Q1

REPORT INFORMATION
  Report Type: Spontaneous
  Country: IT (occurrence: IT)
  Receive Date: 20240311
  Receipt Date: 20240325
  Transmission Date: 20240410
  Serious: Yes (Life-Threatening, Hospitalization)
  Sender: FDA-Public Use
  Company Number: IT-JNJFOC-20240320030

PATIENT
  Age: 59 Year
  Sex: Female
  Weight: 38.136 kg

DRUGS (3)
  1. TREMFYA [Suspect]
     Active Substance: GUSELKUMAB
     Indication: Psoriatic arthropathy
     Route: 059
     Dates: start: 202303, end: 202401
  2. TREMFYA [Suspect]
     Active Substance: GUSELKUMAB
  3. TREMFYA [Suspect]
     Active Substance: GUSELKUMAB

REACTIONS (3)
  - Brain neoplasm [Not Recovered/Not Resolved]
  - Hemiparesis [Unknown]
  - Off label use [Unknown]

NARRATIVE: CASE EVENT DATE: 20240122
